FAERS Safety Report 4460540-6 (Version None)
Quarter: 2004Q3

REPORT INFORMATION
  Report Type: 
  Country: None (occurrence: None)
  Receive Date: 20040928
  Receipt Date: 20040816
  Transmission Date: 20050211
  Serious: No
  Sender: FDA-Public Use
  Company Number: US-GLAXOSMITHKLINE-A0522236A

PATIENT
  Age: 57 Year
  Sex: Female

DRUGS (3)
  1. ADVAIR DISKUS 100/50 [Suspect]
     Dosage: 1PUFF TWICE PER DAY
     Route: 055
     Dates: end: 20040701
  2. ALBUTEROL [Concomitant]
  3. LEVO-THYROXIN [Concomitant]

REACTIONS (4)
  - AGEUSIA [None]
  - HYPOAESTHESIA ORAL [None]
  - MOUTH PLAQUE [None]
  - MOUTH ULCERATION [None]
